FAERS Safety Report 9161922 (Version 1)
Quarter: 2013Q1

REPORT INFORMATION
  Report Type: Spontaneous
  Country: US (occurrence: None)
  Receive Date: 20130221
  Receipt Date: 20130221
  Transmission Date: 20140127
  Serious: Yes (Hospitalization)
  Sender: FDA-Public Use
  Company Number: 25235959-2013-00009

PATIENT
  Age: 44 Year
  Sex: 0
  Weight: 62 kg

DRUGS (1)
  1. UVADEX [Suspect]
     Indication: CHRONIC GRAFT VERSUS HOST DISEASE
     Dates: start: 201211

REACTIONS (4)
  - Pyrexia [None]
  - Chills [None]
  - Vomiting [None]
  - Transfusion reaction [None]
